FAERS Safety Report 8403570-1 (Version None)
Quarter: 2012Q2

REPORT INFORMATION
  Report Type: 
  Country: None (occurrence: None)
  Receive Date: 20120601
  Receipt Date: 20120525
  Transmission Date: 20120825
  Serious: Yes (Hospitalization, Other)
  Sender: FDA-Public Use
  Company Number: US-INCYTE CORPORATION-2012IN000909

PATIENT
  Sex: Male

DRUGS (4)
  1. COREG [Concomitant]
  2. LISINOPRIL [Concomitant]
  3. LOMOTIL [Concomitant]
  4. JAKAFI [Suspect]
     Indication: MYELOFIBROSIS
     Dosage: 20 MG, BID
     Route: 048
     Dates: start: 20120116, end: 20120515

REACTIONS (6)
  - ATRIAL FIBRILLATION [None]
  - DIARRHOEA [None]
  - HYPOTENSION [None]
  - SERUM FERRITIN INCREASED [None]
  - DEHYDRATION [None]
  - CIRCULATORY COLLAPSE [None]
